FAERS Safety Report 8799683 (Version 3)
Quarter: 2013Q1

REPORT INFORMATION
  Report Type: Spontaneous
  Country: US (occurrence: US)
  Receive Date: 20120919
  Receipt Date: 20130108
  Transmission Date: 20140127
  Serious: No
  Sender: FDA-Public Use
  Company Number: US-009507513-1209USA005634

PATIENT
  Sex: Female
  Weight: 72.11 kg

DRUGS (3)
  1. NEXPLANON [Suspect]
     Indication: CONTRACEPTION
     Dosage: 1 DF, UNK
     Route: 059
     Dates: start: 20120622
  2. CONCERTA [Concomitant]
  3. CLONIDINE [Concomitant]

REACTIONS (3)
  - Injury [Unknown]
  - Application site discomfort [Not Recovered/Not Resolved]
  - Device breakage [Unknown]
